FAERS Safety Report 7216180-9 (Version None)
Quarter: 2011Q1

REPORT INFORMATION
  Report Type: 
  Country: None (occurrence: None)
  Receive Date: 20110107
  Receipt Date: 20110105
  Transmission Date: 20110831
  Serious: Yes (Other)
  Sender: FDA-Public Use
  Company Number: JP-PFIZER INC-2011002067

PATIENT
  Age: 69 Year
  Sex: Male

DRUGS (7)
  1. RISPERIDONE [Suspect]
     Indication: SCHIZOPHRENIA
  2. DIAZEPAM [Suspect]
     Indication: SCHIZOPHRENIA
  3. FLUNITRAZEPAM [Suspect]
     Indication: SCHIZOPHRENIA
  4. SULTOPRIDE [Suspect]
     Indication: SCHIZOPHRENIA
  5. TRIHEXYPHENIDYL [Suspect]
     Dosage: UNK
  6. TIMIPERONE [Suspect]
     Indication: SCHIZOPHRENIA
  7. PROMETHAZINE [Suspect]
     Indication: SCHIZOPHRENIA

REACTIONS (6)
  - PNEUMONIA ASPIRATION [None]
  - RHABDOMYOLYSIS [None]
  - LIVER DISORDER [None]
  - RESPIRATORY FAILURE [None]
  - RENAL FAILURE [None]
  - NEUROLEPTIC MALIGNANT SYNDROME [None]
